FAERS Safety Report 4905372-7 (Version None)
Quarter: 2006Q1

REPORT INFORMATION
  Report Type: 
  Country: None (occurrence: None)
  Receive Date: 20060207
  Receipt Date: 20060207
  Transmission Date: 20060701
  Serious: Yes (Other)
  Sender: FDA-Public Use
  Company Number: None

PATIENT
  Age: 23 Year
  Sex: Female
  Weight: 61.2356 kg

DRUGS (1)
  1. CYMBALTA [Suspect]
     Indication: LETHARGY
     Dosage: 60 MG ONCE DAILY PO
     Route: 048
     Dates: start: 20050922, end: 20060122

REACTIONS (16)
  - DISTURBANCE IN ATTENTION [None]
  - DIZZINESS [None]
  - DRUG EFFECT DECREASED [None]
  - DRUG INEFFECTIVE [None]
  - DRUG WITHDRAWAL SYNDROME [None]
  - EYE ROLLING [None]
  - FATIGUE [None]
  - FEELING ABNORMAL [None]
  - FEELING DRUNK [None]
  - HOT FLUSH [None]
  - IMPAIRED DRIVING ABILITY [None]
  - IMPAIRED WORK ABILITY [None]
  - INDIFFERENCE [None]
  - MOTION SICKNESS [None]
  - NERVOUS SYSTEM DISORDER [None]
  - STOMACH DISCOMFORT [None]
